FAERS Safety Report 8319936-4 (Version None)
Quarter: 2012Q2

REPORT INFORMATION
  Report Type: 
  Country: None (occurrence: None)
  Receive Date: 20120427
  Receipt Date: 20120417
  Transmission Date: 20120825
  Serious: Yes (Hospitalization)
  Sender: FDA-Public Use
  Company Number: FR-FRI-1000030073

PATIENT
  Sex: Female

DRUGS (4)
  1. LEXOMIL [Suspect]
     Route: 048
     Dates: start: 20101001
  2. ACETAMINOPHEN [Suspect]
     Dosage: 2 DF
     Route: 048
     Dates: start: 20110401
  3. ESCITALOPRAM [Suspect]
     Dosage: 10 MG
     Route: 048
     Dates: start: 20110818, end: 20120322
  4. LYRICA [Suspect]
     Route: 048
     Dates: start: 20081201

REACTIONS (1)
  - INTERSTITIAL LUNG DISEASE [None]
